FAERS Safety Report 6410537-1 (Version None)
Quarter: 2009Q4

REPORT INFORMATION
  Report Type: 
  Country: None (occurrence: None)
  Receive Date: 20091022
  Receipt Date: 20091019
  Transmission Date: 20100525
  Serious: Yes (Other)
  Sender: FDA-Public Use
  Company Number: IN-BRISTOL-MYERS SQUIBB COMPANY-14821060

PATIENT
  Age: 5 Year
  Sex: Male

DRUGS (2)
  1. ETOPOSIDE [Suspect]
     Indication: BURKITT'S LYMPHOMA
  2. CYTARABINE [Suspect]
     Indication: BURKITT'S LYMPHOMA
     Dosage: 1 DOSAGE FORM=50MG/M2 OVER 12 HRS AND 3 G/M2 OVER 3 HOURS.

REACTIONS (1)
  - PALMAR-PLANTAR ERYTHRODYSAESTHESIA SYNDROME [None]
